FAERS Safety Report 17942300 (Version 1)
Quarter: 2020Q2

REPORT INFORMATION
  Report Type: Spontaneous
  Country: US (occurrence: US)
  Receive Date: 20200625
  Receipt Date: 20200625
  Transmission Date: 20200714
  Serious: Yes (Hospitalization)
  Sender: FDA-Public Use
  Company Number: None

PATIENT
  Age: 63 Year
  Sex: Male

DRUGS (5)
  1. HYDROCHLOROT CAP 12.5MG [Concomitant]
     Dates: start: 20200624
  2. LOSARTAN POT TAB 100MG [Concomitant]
     Dates: start: 20200624
  3. TALTZ [Suspect]
     Active Substance: IXEKIZUMAB
     Indication: PSORIATIC ARTHROPATHY
     Dosage: ?
     Route: 058
     Dates: start: 20181030
  4. DUOBRII LOT [Concomitant]
     Dates: start: 20200624
  5. METOPROL SUC TAB 100MG ER [Concomitant]
     Dates: start: 20200624

REACTIONS (6)
  - Cholelithiasis [None]
  - Psoriatic arthropathy [None]
  - Sepsis [None]
  - Hepatic infection [None]
  - Biliary tract infection [None]
  - Psoriasis [None]

NARRATIVE: CASE EVENT DATE: 20200512
